FAERS Safety Report 11752011 (Version 3)
Quarter: 2015Q4

REPORT INFORMATION
  Report Type: Spontaneous
  Country: JP (occurrence: JP)
  Receive Date: 20151118
  Receipt Date: 20151228
  Transmission Date: 20160304
  Serious: Yes (Other)
  Sender: FDA-Public Use
  Company Number: JP-GLAXOSMITHKLINE-JP2015JPN162342

PATIENT
  Sex: Male

DRUGS (5)
  1. NAFTOPIDIL [Suspect]
     Active Substance: NAFTOPIDIL
     Indication: BENIGN PROSTATIC HYPERPLASIA
     Dosage: 75 MG, 1D
     Route: 048
     Dates: start: 201510, end: 201511
  2. FLIVAS [Concomitant]
     Active Substance: NAFTOPIDIL
     Dosage: 50 MG, 1D
     Route: 048
     Dates: start: 201511
  3. ZALUTIA [Suspect]
     Active Substance: TADALAFIL
     Dosage: 5 MG, 1D
     Route: 048
  4. AVOLVE [Suspect]
     Active Substance: DUTASTERIDE
     Indication: BENIGN PROSTATIC HYPERPLASIA
     Dosage: 0.5 MG, QD
     Route: 048
     Dates: start: 201505
  5. FLIVAS [Concomitant]
     Active Substance: NAFTOPIDIL
     Indication: BENIGN PROSTATIC HYPERPLASIA
     Dosage: 50 MG, 1D
     Route: 048
     Dates: start: 20141024, end: 201510

REACTIONS (2)
  - Loss of consciousness [Unknown]
  - Feeling abnormal [Recovered/Resolved]

NARRATIVE: CASE EVENT DATE: 2015
